FAERS Safety Report 8206385-2 (Version None)
Quarter: 2012Q1

REPORT INFORMATION
  Report Type: 
  Country: None (occurrence: None)
  Receive Date: 20120313
  Receipt Date: 20120307
  Transmission Date: 20120608
  Serious: Yes (Hospitalization, Other)
  Sender: FDA-Public Use
  Company Number: PHHY2012BR020374

PATIENT
  Sex: Female

DRUGS (7)
  1. EXELON [Suspect]
     Indication: DEMENTIA ALZHEIMER'S TYPE
     Dosage: 1.5 MG, UNK
     Route: 048
  2. EXELON [Suspect]
     Dosage: 6 MG, AT A DOSE OF 2 CAPSULES DAILY
     Route: 048
  3. OSTEOFORM [Concomitant]
     Indication: OSTEOPOROSIS
     Dosage: 1 TABLET EACH 28 DAYS
  4. NAPRIX [Concomitant]
     Indication: BLOOD PRESSURE
     Dosage: 1 DF DAILY
  5. INSULIN [Concomitant]
     Indication: DIABETES MELLITUS
     Dosage: 20 UI AT MORNING AND 10 UI AT NIGHT
  6. EXELON [Suspect]
     Dosage: 3 MG, UNK
     Route: 048
  7. CALCIUM [Concomitant]
     Indication: OSTEOPOROSIS
     Dosage: 1 DF, DAILY

REACTIONS (4)
  - RECTAL NEOPLASM [None]
  - GASTROINTESTINAL MOTILITY DISORDER [None]
  - APHAGIA [None]
  - INSOMNIA [None]
